FAERS Safety Report 14201567 (Version 1)
Quarter: 2017Q4

REPORT INFORMATION
  Report Type: Spontaneous
  Country: US (occurrence: US)
  Receive Date: 20171117
  Receipt Date: 20171117
  Transmission Date: 20180321
  Serious: No
  Sender: FDA-Public Use
  Company Number: US-PERRIGO-17US026376

PATIENT
  Age: 47 Year
  Sex: Male

DRUGS (4)
  1. TYLENOL [Concomitant]
     Active Substance: ACETAMINOPHEN
     Indication: PAIN
     Dosage: UNKNOWN, PRN
     Route: 048
  2. OTHER ANTIPSORIATICS FOR TOPICAL USE [Concomitant]
     Indication: PSORIASIS
     Dosage: UNK
     Route: 061
  3. POLYETHYLENE GLYCOL 3350. [Suspect]
     Active Substance: POLYETHYLENE GLYCOL 3350
     Indication: CONSTIPATION
     Dosage: SLIGHTLY MORE THAN 17 G IN DIVIDED DOSES 4-5 HOURS APART, PRN
     Route: 051
     Dates: start: 201707, end: 201708
  4. VOLTAREN [Concomitant]
     Active Substance: DICLOFENAC SODIUM
     Indication: ARTHRALGIA
     Dosage: UNKNOWN, PRN
     Route: 061

REACTIONS (5)
  - Dry skin [Not Recovered/Not Resolved]
  - Dehydration [Not Recovered/Not Resolved]
  - Incorrect route of drug administration [Recovered/Resolved]
  - Incorrect dose administered [Recovered/Resolved]
  - Blood sodium increased [Unknown]

NARRATIVE: CASE EVENT DATE: 201707
